FAERS Safety Report 7817782-9 (Version None)
Quarter: 2011Q4

REPORT INFORMATION
  Report Type: 
  Country: None (occurrence: None)
  Receive Date: 20111017
  Receipt Date: 20111012
  Transmission Date: 20120403
  Serious: Yes (Death, Hospitalization)
  Sender: FDA-Public Use
  Company Number: DE-PFIZER INC-2011154504

PATIENT
  Age: 72 Year
  Sex: Female
  Weight: 65 kg

DRUGS (12)
  1. PANTOPRAZOLE SODIUM [Concomitant]
     Dosage: 40 MG, 1X/DAY
     Route: 048
     Dates: start: 20110203
  2. DEXAMETHASONE [Concomitant]
     Dosage: 2 MG, 3X/DAY, 2-1-0
     Dates: start: 20110630, end: 20110710
  3. LEVOTHYROXINE SODIUM [Concomitant]
     Indication: HYPOTHYROIDISM
     Dosage: 75 MG, 2X/DAY
     Dates: start: 20110429
  4. ABACIN [Concomitant]
     Indication: ANTIFUNGAL PROPHYLAXIS
     Dosage: 960 MG, UNK
     Route: 048
     Dates: start: 20110322
  5. DEXAMETHASONE [Concomitant]
     Dosage: 8 MG, 3X/DAY
     Route: 048
     Dates: start: 20110711
  6. DEXAMETHASONE [Concomitant]
     Indication: BRAIN OEDEMA
     Dosage: 2 MG, 3X/DAY, 2-1-0
     Route: 048
     Dates: start: 20110602, end: 20110609
  7. DEXAMETHASONE [Concomitant]
     Dosage: 1 MG, 3-2-0
     Route: 048
     Dates: start: 20110610, end: 20110616
  8. ARIXTRA [Concomitant]
     Indication: PULMONARY EMBOLISM
     Dosage: 7.5 MG, 1X/DAY
     Route: 058
     Dates: start: 20110201
  9. DEXAMETHASONE [Concomitant]
     Dosage: 2 MG, 2X/DAY, 1-1-0
     Route: 048
     Dates: start: 20110617, end: 20110629
  10. FRISIUM [Concomitant]
     Indication: CONVULSION
     Dosage: 2.5MG -2.5MG - 5MG
     Route: 048
     Dates: start: 20110321, end: 20110713
  11. KEPPRA [Concomitant]
     Indication: CONVULSION
     Dosage: 1500 MG, 2X/DAY
     Route: 048
     Dates: start: 20110321
  12. TEMSIROLIMUS [Suspect]
     Indication: GLIOBLASTOMA
     Dosage: 25 MG, WEEKLY
     Route: 042
     Dates: start: 20110120, end: 20110706

REACTIONS (2)
  - URINARY TRACT INFECTION [None]
  - DEATH [None]
